FAERS Safety Report 14530725 (Version 1)
Quarter: 2018Q1

REPORT INFORMATION
  Report Type: Spontaneous
  Country: US (occurrence: US)
  Receive Date: 20180213
  Receipt Date: 20180213
  Transmission Date: 20180509
  Serious: Yes (Hospitalization)
  Sender: FDA-Public Use
  Company Number: None

PATIENT
  Sex: Male
  Weight: 20.25 kg

DRUGS (3)
  1. MULTIVITAMINS [Concomitant]
     Active Substance: VITAMINS
  2. GADAVIST [Suspect]
     Active Substance: GADOBUTROL
     Indication: SCAN WITH CONTRAST
     Dosage: ?          QUANTITY:1 INJECTION(S);OTHER FREQUENCY:ONE TIME;?
     Route: 042
  3. KEPPRA [Concomitant]
     Active Substance: LEVETIRACETAM

REACTIONS (3)
  - Seizure [None]
  - Headache [None]
  - Rash [None]

NARRATIVE: CASE EVENT DATE: 20160528
